FAERS Safety Report 22390577 (Version 1)
Quarter: 2023Q2

REPORT INFORMATION
  Report Type: Spontaneous
  Country: CN (occurrence: CN)
  Receive Date: 20230531
  Receipt Date: 20230531
  Transmission Date: 20230721
  Serious: Yes (Other)
  Sender: FDA-Public Use
  Company Number: CN-ANIPHARMA-2023-CN-000291

PATIENT
  Age: 60 Year
  Sex: Female

DRUGS (2)
  1. OXCARBAZEPINE [Suspect]
     Active Substance: OXCARBAZEPINE
     Indication: Epilepsy
     Dosage: 300 MG TWICE DAILY
     Route: 048
     Dates: start: 20171114
  2. FELODIPINE [Concomitant]
     Active Substance: FELODIPINE
     Dosage: 5 MG DAILY

REACTIONS (3)
  - Atrial fibrillation [Recovered/Resolved]
  - Sinoatrial block [Recovered/Resolved]
  - Atrioventricular block [Recovered/Resolved]
